FAERS Safety Report 26172360 (Version 1)
Quarter: 2025Q4

REPORT INFORMATION
  Report Type: Spontaneous
  Country: EU (occurrence: EU)
  Receive Date: 20251218
  Receipt Date: 20251218
  Transmission Date: 20260118
  Serious: Yes (Hospitalization, Other)
  Sender: AUROBINDO
  Company Number: EU-009507513-2352406

PATIENT
  Age: 55 Year
  Sex: Male

DRUGS (4)
  1. PEMETREXED [Suspect]
     Active Substance: PEMETREXED
     Indication: Non-small cell lung cancer metastatic
     Dosage: UNK
     Route: 065
  2. CARBOPLATIN [Suspect]
     Active Substance: CARBOPLATIN
     Indication: Non-small cell lung cancer metastatic
     Dosage: UNK
     Route: 065
  3. PEMBROLIZUMAB [Suspect]
     Active Substance: PEMBROLIZUMAB
     Indication: Non-small cell lung cancer metastatic
     Dosage: FOR FOUR CYCLES; FOLLOWING THE INITIAL REGIMEN, THE PATIENT TRANSITIONED TO MAINTENANCETHERAPY, INITIALLY RECEIVING A COMBINATION OF PEMBROLIZUMAB AND PEMETREXED (FROM MAY), THEN TRANSITIONING TO PEMBROLIZUMAB MONOTHERAPY EVERY 21 DAYS (FROM JUNE)
     Route: 065
  4. PEMBROLIZUMAB [Suspect]
     Active Substance: PEMBROLIZUMAB
     Dosage: UNK
     Route: 065

REACTIONS (2)
  - Immune-mediated encephalitis [Recovered/Resolved]
  - Immune-mediated hypothyroidism [Recovered/Resolved]

NARRATIVE: CASE EVENT DATE: 20230401
